FAERS Safety Report 7396941-6 (Version None)
Quarter: 2011Q2

REPORT INFORMATION
  Report Type: 
  Country: None (occurrence: None)
  Receive Date: 20110406
  Receipt Date: 20110309
  Transmission Date: 20111010
  Serious: No
  Sender: FDA-Public Use
  Company Number: US-BAYER-2011-023543

PATIENT
  Sex: Male
  Weight: 104 kg

DRUGS (8)
  1. VARDENAFIL [Concomitant]
  2. LOSARTAN POTASSIUM [Concomitant]
  3. AMLODIPINE [Concomitant]
  4. ALEVE (CAPLET) [Suspect]
     Indication: ARTHRITIS
     Dosage: 2 DF, QD
     Route: 048
  5. EZETIMIBE [Concomitant]
  6. FLUOXETINE [Concomitant]
  7. DICLOFENAC [Concomitant]
  8. LABETALOL [Concomitant]

REACTIONS (1)
  - NO ADVERSE EVENT [None]
